FAERS Safety Report 9850887 (Version 1)
Quarter: 2014Q1

REPORT INFORMATION
  Report Type: Spontaneous
  Country: US (occurrence: None)
  Receive Date: 20140124
  Receipt Date: 20140124
  Transmission Date: 20141002
  Serious: Yes (Death)
  Sender: FDA-Public Use
  Company Number: 2014AP000441

PATIENT
  Age: 60 Year
  Sex: Female

DRUGS (3)
  1. TRAMADOL HYDROCHLORIDE TABLETS [Suspect]
     Dosage: ; PO
     Route: 048
  2. CITALOPRAM [Suspect]
     Dosage: ; PO
     Route: 048
  3. ACETAMINOPHEN W/HYDROCODONE [Suspect]
     Dosage: ; PO
     Route: 048

REACTIONS (1)
  - Completed suicide [None]
